FAERS Safety Report 13111462 (Version 1)
Quarter: 2017Q1

REPORT INFORMATION
  Report Type: Spontaneous
  Country: US (occurrence: US)
  Receive Date: 20170112
  Receipt Date: 20170112
  Transmission Date: 20170428
  Serious: Yes (Life-Threatening, Hospitalization, Other)
  Sender: FDA-Public Use
  Company Number: US-ASTRAZENECA-2017SE02512

PATIENT
  Age: 495 Month
  Sex: Female
  Weight: 74.2 kg

DRUGS (16)
  1. SEROQUEL XR [Suspect]
     Active Substance: QUETIAPINE FUMARATE
     Indication: BIPOLAR DISORDER
     Route: 048
  2. KLONOPIN [Concomitant]
     Active Substance: CLONAZEPAM
     Indication: PANIC ATTACK
     Route: 048
     Dates: start: 2007
  3. BUSPAR [Concomitant]
     Active Substance: BUSPIRONE HYDROCHLORIDE
     Indication: ANXIETY
     Route: 048
     Dates: start: 20160902
  4. TRAZODONE [Concomitant]
     Active Substance: TRAZODONE HYDROCHLORIDE
     Indication: SLEEP DISORDER
     Dosage: 1 OR 2 TABLETS AT NIGHT
     Route: 048
     Dates: start: 2007
  5. EFFEXOR IR [Concomitant]
     Indication: DEPRESSION
     Route: 048
  6. ARTANE [Concomitant]
     Active Substance: TRIHEXYPHENIDYL HYDROCHLORIDE
     Indication: AKINESIA
     Dates: start: 201609
  7. ARTANE [Concomitant]
     Active Substance: TRIHEXYPHENIDYL HYDROCHLORIDE
     Indication: RESTLESS LEGS SYNDROME
     Dates: start: 201609
  8. ELAVIL [Concomitant]
     Active Substance: AMITRIPTYLINE HYDROCHLORIDE
     Indication: SEIZURE
     Route: 048
     Dates: start: 201609
  9. SEROQUEL XR [Suspect]
     Active Substance: QUETIAPINE FUMARATE
     Indication: BIPOLAR DISORDER
     Route: 048
  10. ZANAFLEX [Concomitant]
     Active Substance: TIZANIDINE HYDROCHLORIDE
     Indication: STRESS
     Route: 048
     Dates: start: 2016
  11. SEROQUEL XR [Suspect]
     Active Substance: QUETIAPINE FUMARATE
     Indication: BIPOLAR DISORDER
     Route: 048
     Dates: end: 2014
  12. ZANAFLEX [Concomitant]
     Active Substance: TIZANIDINE HYDROCHLORIDE
     Indication: MIGRAINE
     Route: 048
     Dates: start: 2016
  13. ESTRADIOL. [Concomitant]
     Active Substance: ESTRADIOL
     Indication: OESTROGEN THERAPY
     Route: 048
     Dates: start: 2013
  14. SEROQUEL XR [Suspect]
     Active Substance: QUETIAPINE FUMARATE
     Indication: BIPOLAR DISORDER
     Route: 048
     Dates: start: 20160915
  15. LAMICTAL [Suspect]
     Active Substance: LAMOTRIGINE
     Route: 065
  16. VYVANSE [Concomitant]
     Active Substance: LISDEXAMFETAMINE DIMESYLATE
     Indication: ATTENTION DEFICIT/HYPERACTIVITY DISORDER
     Route: 048
     Dates: start: 2016

REACTIONS (25)
  - Psychotic disorder [Unknown]
  - Depression [Unknown]
  - Cognitive disorder [Unknown]
  - Asthma [Unknown]
  - Weight increased [Not Recovered/Not Resolved]
  - Suicide attempt [Unknown]
  - Blood potassium decreased [Unknown]
  - Generalised tonic-clonic seizure [Unknown]
  - Amnesia [Unknown]
  - Contusion [Unknown]
  - Weight decreased [Unknown]
  - Bronchitis chronic [Unknown]
  - Tremor [Unknown]
  - Blood sodium decreased [Unknown]
  - Paranoia [Unknown]
  - Decreased appetite [Unknown]
  - Repetitive speech [Unknown]
  - Malnutrition [Unknown]
  - Chromaturia [Unknown]
  - Crying [Unknown]
  - Intentional self-injury [Unknown]
  - Mania [Unknown]
  - Fall [Unknown]
  - General physical health deterioration [Unknown]
  - Bulimia nervosa [Unknown]

NARRATIVE: CASE EVENT DATE: 201003
